FAERS Safety Report 9188674 (Version 1)
Quarter: 2013Q1

REPORT INFORMATION
  Report Type: Spontaneous
  Country: US (occurrence: US)
  Receive Date: 20130325
  Receipt Date: 20130325
  Transmission Date: 20140127
  Serious: Yes (Hospitalization, Other)
  Sender: FDA-Public Use
  Company Number: US-BAYER-2013-034515

PATIENT
  Sex: Female
  Weight: 50 kg

DRUGS (2)
  1. ALEVE [Suspect]
     Indication: ANALGESIC THERAPY
     Dosage: UNK
  2. ANALGESICS [Concomitant]

REACTIONS (13)
  - Dehydration [None]
  - Convulsion [None]
  - Drug ineffective [None]
  - Feeling cold [None]
  - Pain in extremity [None]
  - Skin discolouration [None]
  - Heart rate abnormal [None]
  - Livedo reticularis [None]
  - Gastritis [None]
  - Paraesthesia [None]
  - Malaise [None]
  - Chills [None]
  - Pain in extremity [None]
